FAERS Safety Report 6829871-6 (Version None)
Quarter: 2010Q3

REPORT INFORMATION
  Report Type: 
  Country: None (occurrence: None)
  Receive Date: 20100710
  Receipt Date: 20100629
  Transmission Date: 20110219
  Serious: No
  Sender: FDA-Public Use
  Company Number: AU-JNJFOC-20100700354

PATIENT
  Age: 7 Decade
  Sex: Female

DRUGS (1)
  1. DURAGESIC-100 [Suspect]
     Indication: HERPES ZOSTER
     Route: 062

REACTIONS (4)
  - DIZZINESS [None]
  - DRUG PRESCRIBING ERROR [None]
  - FATIGUE [None]
  - WRONG TECHNIQUE IN DRUG USAGE PROCESS [None]
